FAERS Safety Report 8516899-3 (Version None)
Quarter: 2012Q3

REPORT INFORMATION
  Report Type: 
  Country: None (occurrence: None)
  Receive Date: 20120718
  Receipt Date: 20120712
  Transmission Date: 20120928
  Serious: Yes (Life-Threatening, Hospitalization)
  Sender: FDA-Public Use
  Company Number: SE-ELI_LILLY_AND_COMPANY-SE201203008346

PATIENT
  Sex: Male
  Weight: 87.5 kg

DRUGS (6)
  1. KALCIUM D-VITAMIN [Concomitant]
     Dosage: UNK
     Dates: start: 20111020
  2. ACETYLCYSTEINE [Concomitant]
     Dosage: UNK
     Dates: start: 20120319
  3. ACETAMINOPHEN [Concomitant]
     Indication: PAIN
     Dosage: UNK
     Dates: start: 20110513
  4. DOXYCYCLINE [Concomitant]
     Indication: RESPIRATORY TRACT INFECTION
     Dosage: UNK
     Dates: start: 20120319, end: 20120323
  5. FORTEO [Suspect]
     Indication: OSTEOPOROSIS
     Dosage: 20 UG, QD
     Route: 058
     Dates: start: 20111020, end: 20120328
  6. AMOXICILLIN [Concomitant]
     Dosage: UNK
     Dates: start: 20120323

REACTIONS (2)
  - ALVEOLITIS [None]
  - INTERSTITIAL LUNG DISEASE [None]
